FAERS Safety Report 9133704 (Version 1)
Quarter: 2013Q1

REPORT INFORMATION
  Report Type: Spontaneous
  Country: US (occurrence: US)
  Receive Date: 20130302
  Receipt Date: 20130302
  Transmission Date: 20140127
  Serious: Yes (Hospitalization)
  Sender: FDA-Public Use
  Company Number: US-ACCORD-016658

PATIENT
  Age: 25 Year
  Sex: Female

DRUGS (5)
  1. MYCOPHENOLATE [Concomitant]
     Indication: LUNG TRANSPLANT
     Dosage: MYCOPHENYLATE
  2. SIROLIMUS [Concomitant]
     Indication: LUNG TRANSPLANT
  3. TRIMETHOPRIM SULFAMETHOXAZOLE [Concomitant]
     Indication: PROPHYLAXIS
  4. PREDNISONE [Concomitant]
     Indication: LUNG TRANSPLANT
  5. TACROLIMUS [Suspect]
     Indication: LUNG TRANSPLANT
     Dosage: 4.5 MG IN THE MORNING AND 4 MG AT NIGHT

REACTIONS (2)
  - Thrombotic microangiopathy [Recovered/Resolved]
  - Off label use [Unknown]
